FAERS Safety Report 7973565-0 (Version None)
Quarter: 2011Q4

REPORT INFORMATION
  Report Type: 
  Country: None (occurrence: None)
  Receive Date: 20111213
  Receipt Date: 20111202
  Transmission Date: 20120403
  Serious: Yes (Hospitalization)
  Sender: FDA-Public Use
  Company Number: ES-SHIRE-SPV1-2011-01354

PATIENT
  Age: 82 Year
  Sex: Female

DRUGS (2)
  1. ANAGRELIDE HYDROCHLORIDE [Suspect]
     Indication: ESSENTIAL THROMBOCYTHAEMIA
     Dosage: 4 MG, (1.5MG BREAKFAST-1.5MG LUNCH-1MG DINNER)
     Route: 048
     Dates: start: 20100101
  2. DENUBIL [Interacting]
     Indication: PRODUCT USED FOR UNKNOWN INDICATION
     Dosage: UNK UNK, UNKNOWN
     Route: 048
     Dates: start: 20110902, end: 20110901

REACTIONS (5)
  - URINARY TRACT INFECTION [None]
  - DRUG INTERACTION [None]
  - RENAL FAILURE [None]
  - THROMBOCYTOPENIA [None]
  - OEDEMA PERIPHERAL [None]
